FAERS Safety Report 9882128 (Version 1)
Quarter: 2014Q1

REPORT INFORMATION
  Report Type: Report from Study
  Country: CA (occurrence: CA)
  Receive Date: 20140207
  Receipt Date: 20140207
  Transmission Date: 20141002
  Serious: Yes (Other)
  Sender: FDA-Public Use
  Company Number: CA-BRISTOL-MYERS SQUIBB COMPANY-20096756

PATIENT
  Age: 78 Year
  Sex: Male

DRUGS (9)
  1. PLACEBO [Suspect]
     Indication: TYPE 2 DIABETES MELLITUS
     Dates: start: 20131121
  2. METFORMIN HCL [Suspect]
     Indication: TYPE 2 DIABETES MELLITUS
     Route: 048
  3. ACETYLSALICYLIC ACID [Concomitant]
     Indication: CORONARY ARTERY DISEASE
     Route: 048
  4. VALSARTAN [Concomitant]
     Indication: CORONARY ARTERY DISEASE
     Route: 048
  5. ATENOLOL [Concomitant]
     Indication: CORONARY ARTERY DISEASE
     Route: 048
  6. COD LIVER OIL [Concomitant]
     Indication: PROPHYLAXIS
     Route: 048
  7. RIVAROXABAN [Concomitant]
     Indication: ATRIAL FIBRILLATION
     Route: 048
  8. TRAVOPROST [Concomitant]
     Indication: GLAUCOMA
     Route: 048
  9. CRESTOR [Concomitant]
     Route: 048

REACTIONS (1)
  - Bladder neoplasm [Not Recovered/Not Resolved]
